FAERS Safety Report 8472072-9 (Version None)
Quarter: 2012Q2

REPORT INFORMATION
  Report Type: 
  Country: None (occurrence: None)
  Receive Date: 20120627
  Receipt Date: 20120620
  Transmission Date: 20120825
  Serious: Yes (Other)
  Sender: FDA-Public Use
  Company Number: US-BAYER-2012-046254

PATIENT
  Age: 34 Year
  Sex: Female

DRUGS (2)
  1. MIRENA [Suspect]
     Indication: CONTRACEPTION
     Dosage: UNK UNK, CONT
     Route: 015
     Dates: start: 20120402, end: 20120510
  2. MIRENA [Suspect]
     Indication: MENORRHAGIA

REACTIONS (3)
  - UTERINE PERFORATION [None]
  - PRODUCT SHAPE ISSUE [None]
  - DEVICE DISLOCATION [None]
